FAERS Safety Report 22079276 (Version 1)
Quarter: 2023Q1

REPORT INFORMATION
  Report Type: Report from Study
  Country: US (occurrence: US)
  Receive Date: 20230309
  Receipt Date: 20230309
  Transmission Date: 20230418
  Serious: Yes (Other)
  Sender: FDA-Public Use
  Company Number: US-SOCIETAL CDMO GAINESVILLE, LLC-SOC-2023-000010

PATIENT

DRUGS (1)
  1. VERAPAMIL HYDROCHLORIDE [Suspect]
     Active Substance: VERAPAMIL HYDROCHLORIDE
     Indication: Insulin C-peptide
     Dosage: SARTED WITH 60 MG/D OR 120 MG/D. THE DOSE WAS ESCALATED AT 2- TO 4-WEEK INTERVALS TO A MAXIMUM OF DO
     Route: 065

REACTIONS (3)
  - Hypoglycaemia [Unknown]
  - Depression [Unknown]
  - Suicidal ideation [Unknown]
